FAERS Safety Report 8866128 (Version 3)
Quarter: 2012Q4

REPORT INFORMATION
  Report Type: 
  Country: US (occurrence: US)
  Receive Date: 20121025
  Receipt Date: 20121102
  Transmission Date: 20130627
  Serious: Yes (Other)
  Sender: FDA-Public Use
  Company Number: US-PFIZER INC-2012265343

PATIENT
  Sex: Male

DRUGS (14)
  1. PROTONIX [Suspect]
     Indication: ACID REFLUX (ESOPHAGEAL)
     Dosage: UNK
     Route: 064
  2. ZITHROMAX [Suspect]
     Indication: COLD
     Dosage: UNK
     Route: 064
  3. ROBITUSSIN [Suspect]
     Indication: COLD
     Dosage: UNK
     Route: 064
  4. PROCARDIA [Suspect]
     Indication: UTERINE CONTRACTIONS DURING PREGNANCY
     Dosage: UNK, (every day)
     Route: 064
  5. DIFLUCAN [Suspect]
     Indication: CANDIDIASIS
     Dosage: UNK
     Route: 063
  6. PROTONIX [Suspect]
     Route: 064
  7. ZANTAC [Suspect]
     Indication: ACID REFLUX (ESOPHAGEAL)
     Dosage: UNK
     Route: 064
  8. ZOFRAN [Suspect]
     Indication: NAUSEA
     Dosage: UNK
     Route: 064
  9. ZOFRAN [Suspect]
     Indication: VOMITING
  10. REGLAN [Suspect]
     Indication: NAUSEA
     Dosage: UNK
     Route: 064
  11. REGLAN [Suspect]
     Indication: VOMITING
  12. AUGMENTIN [Suspect]
     Indication: URINARY INFECTION
     Dosage: UNK
     Route: 063
  13. BRETHINE [Suspect]
     Indication: UTERINE CONTRACTIONS DURING PREGNANCY
     Dosage: UNK
     Route: 064
  14. IRON [Suspect]
     Indication: HEMOGLOBIN LOW
     Route: 064

REACTIONS (8)
  - Maternal exposure timing unspecified [Unknown]
  - Exposure during breast feeding [Unknown]
  - Feeding disorder neonatal [Unknown]
  - Weight decreased [Unknown]
  - Somnolence [Unknown]
  - Body temperature fluctuation [Unknown]
  - Gastrooesophageal reflux disease [Unknown]
  - Jaundice neonatal [Unknown]
